FAERS Safety Report 5526511-3 (Version None)
Quarter: 2007Q4

REPORT INFORMATION
  Report Type: 
  Country: None (occurrence: None)
  Receive Date: 20071121
  Receipt Date: 20071121
  Transmission Date: 20080405
  Serious: Yes (Life-Threatening, Hospitalization)
  Sender: FDA-Public Use
  Company Number: None

PATIENT
  Age: 79 Year
  Sex: Female
  Weight: 51.1657 kg

DRUGS (1)
  1. MIRTAZAPINE [Suspect]
     Indication: DEPRESSION
     Dosage: 7.5 MG INCREASED TO 15MG  AT BEDTIME PO
     Route: 048
     Dates: start: 20071021, end: 20071025

REACTIONS (7)
  - HAEMOGLOBIN DECREASED [None]
  - LETHARGY [None]
  - NEUTROPHIL COUNT DECREASED [None]
  - PYREXIA [None]
  - TREATMENT NONCOMPLIANCE [None]
  - WHITE BLOOD CELL COUNT DECREASED [None]
  - WHITE BLOOD CELL COUNT INCREASED [None]
